FAERS Safety Report 4600176-7 (Version None)
Quarter: 2005Q1

REPORT INFORMATION
  Report Type: 
  Country: None (occurrence: None)
  Receive Date: 20050303
  Receipt Date: 20050217
  Transmission Date: 20050727
  Serious: Yes (Hospitalization)
  Sender: FDA-Public Use
  Company Number: DSA_25994_2005

PATIENT
  Age: 82 Year
  Sex: Female

DRUGS (6)
  1. ENALAPRIL MALEATE [Suspect]
     Indication: CARDIAC FAILURE CONGESTIVE
     Dosage: 10 MG Q DAY PO
     Route: 048
     Dates: end: 20050108
  2. SPIRONOLACTONE [Suspect]
     Indication: CARDIAC FAILURE CONGESTIVE
     Dosage: 25 MG Q DAY PO
     Route: 048
     Dates: end: 20050108
  3. FUROSEMIDE [Suspect]
     Indication: CARDIAC FAILURE CONGESTIVE
     Dosage: 40 MG Q DAY PO
     Route: 048
  4. ACENOCOUMAROL [Concomitant]
  5. BISOPROLOL FUMARATE [Concomitant]
  6. BROMAZEPAM [Concomitant]

REACTIONS (5)
  - BLOOD CREATININE INCREASED [None]
  - DEHYDRATION [None]
  - FALL [None]
  - HYPERKALAEMIA [None]
  - PROTEIN TOTAL INCREASED [None]
